FAERS Safety Report 5360472-5 (Version None)
Quarter: 2007Q2

REPORT INFORMATION
  Report Type: 
  Country: None (occurrence: None)
  Receive Date: 20070618
  Receipt Date: 20070614
  Transmission Date: 20071010
  Serious: Yes (Other)
  Sender: FDA-Public Use
  Company Number: A0653205A

PATIENT
  Age: 68 Year
  Sex: Male

DRUGS (8)
  1. AVANDIA [Suspect]
     Dosage: 8MG PER DAY
     Route: 048
     Dates: start: 20050601
  2. GLIPIZIDE [Concomitant]
     Route: 048
  3. GLUCOPHAGE [Concomitant]
     Route: 048
  4. LASIX [Concomitant]
  5. COUMADIN [Concomitant]
  6. ASPIRIN [Concomitant]
  7. ATENOLOL [Concomitant]
     Route: 048
  8. LIPITOR [Concomitant]

REACTIONS (1)
  - PERICARDIAL EFFUSION [None]
